FAERS Safety Report 7792191-X (Version None)
Quarter: 2011Q4

REPORT INFORMATION
  Report Type: 
  Country: None (occurrence: None)
  Receive Date: 20111003
  Receipt Date: 20111003
  Transmission Date: 20120403
  Serious: Yes (Death, Hospitalization, Other)
  Sender: FDA-Public Use
  Company Number: None

PATIENT
  Age: 93 Year
  Sex: Male
  Weight: 58.967 kg

DRUGS (7)
  1. EXCELON [Concomitant]
  2. METOPROL [Concomitant]
  3. LATANOPROST [Concomitant]
  4. MEGESTROL ACETATE [Concomitant]
  5. ABILIFY [Suspect]
     Indication: DEPRESSION
     Dates: start: 20110614, end: 20110626
  6. NAMENDA [Concomitant]
  7. FLUOXETINE [Concomitant]

REACTIONS (2)
  - CEREBROVASCULAR ACCIDENT [None]
  - COMA [None]
